FAERS Safety Report 8475851-7 (Version None)
Quarter: 2012Q2

REPORT INFORMATION
  Report Type: 
  Country: None (occurrence: None)
  Receive Date: 20120628
  Receipt Date: 20120619
  Transmission Date: 20120825
  Serious: Yes (Other)
  Sender: FDA-Public Use
  Company Number: ES-JHP PHARMACEUTICALS, LLC-JHP201200325

PATIENT
  Sex: Female

DRUGS (1)
  1. EPINEPHRINE [Suspect]
     Indication: ANAPHYLACTIC REACTION

REACTIONS (1)
  - CEREBRAL VASOCONSTRICTION [None]
